FAERS Safety Report 6201636-8 (Version None)
Quarter: 2009Q2

REPORT INFORMATION
  Report Type: 
  Country: None (occurrence: None)
  Receive Date: 20090518
  Receipt Date: 20090518
  Transmission Date: 20091009
  Serious: No
  Sender: FDA-Public Use
  Company Number: None

PATIENT

DRUGS (1)
  1. PHOSPHOSODA [Suspect]

REACTIONS (6)
  - DEPRESSION [None]
  - HEADACHE [None]
  - HYPOPHAGIA [None]
  - NEPHROPATHY [None]
  - RENAL FAILURE [None]
  - RENAL TUBULAR DISORDER [None]
